FAERS Safety Report 6755789-3 (Version None)
Quarter: 2010Q2

REPORT INFORMATION
  Report Type: 
  Country: None (occurrence: None)
  Receive Date: 20100604
  Receipt Date: 20100528
  Transmission Date: 20101027
  Serious: Yes (Death, Hospitalization, Other)
  Sender: FDA-Public Use
  Company Number: US-ELI_LILLY_AND_COMPANY-US201002002836

PATIENT
  Sex: Male
  Weight: 65.76 kg

DRUGS (45)
  1. GEMZAR [Suspect]
     Indication: ADENOCARCINOMA PANCREAS
     Dosage: 1900 MG, UNK
     Route: 042
     Dates: start: 20100202, end: 20100202
  2. TARCEVA [Concomitant]
     Indication: PANCREATIC CARCINOMA METASTATIC
     Dosage: 150 MG, DAILY (1/D)
     Route: 048
     Dates: start: 20100129, end: 20100101
  3. BENADRYL [Concomitant]
     Dosage: 25 MG, UNK
     Route: 042
     Dates: start: 20100202
  4. RANITIDINE [Concomitant]
     Dosage: UNK, AS NEEDED
  5. REGLAN [Concomitant]
     Dosage: 50 MG, UNK
     Route: 042
     Dates: start: 20100202
  6. DEXAMETHASONE [Concomitant]
     Dosage: 10 MG, UNK
     Route: 042
     Dates: start: 20100202
  7. COMBIVENT [Concomitant]
     Indication: DYSPNOEA
     Dosage: UNK, EVERY 3 HRS PRN
     Route: 055
     Dates: start: 20100105
  8. IBUPROFEN [Concomitant]
     Dosage: 800 MG, EVERY 8 HRS, X 7 DAYS
     Route: 048
     Dates: start: 20100105
  9. LEVAQUIN [Concomitant]
     Indication: URINARY TRACT INFECTION
     Dosage: 500 MG, DAILY (1/D), X 4 DAYS
     Route: 048
     Dates: start: 20100105
  10. LEVAQUIN [Concomitant]
     Dosage: 750 MG, UNKNOWN
     Route: 042
     Dates: start: 20100204, end: 20100207
  11. NEXIUM [Concomitant]
     Dosage: 40 MG, DAILY (1/D)
     Route: 048
  12. OXYCODONE [Concomitant]
     Indication: PAIN
     Dosage: 15 MG, EVERY 4 HRS
     Route: 048
     Dates: end: 20100101
  13. OXYCODONE [Concomitant]
     Dosage: 5 MG, AS NEEDED
     Route: 048
     Dates: start: 20100101
  14. OXYCONTIN [Concomitant]
     Indication: PAIN
     Dosage: UNK, 2/D
     Route: 048
     Dates: start: 20100101
  15. MORPHINE SULFATE [Concomitant]
     Dosage: 130 MG, 2/D
  16. MORPHINE SULFATE [Concomitant]
     Dosage: 5 TO 20 MG, EVERY HOUR AS NEEDED
     Route: 050
  17. KEFLEX /00145501/ [Concomitant]
     Indication: URINARY TRACT INFECTION
     Dosage: 500 MG, 3/D
     Route: 048
     Dates: end: 20100201
  18. TYLENOL                                 /SCH/ [Concomitant]
     Indication: PAIN
     Dosage: 650 MG, EVERY 6 HRS PRN
     Route: 048
     Dates: start: 20100204
  19. ATENOLOL [Concomitant]
     Dosage: 50 MG, DAILY (1/D)
     Route: 048
     Dates: start: 20100204
  20. DILTIAZEM [Concomitant]
     Dosage: 60 MG, EVERY 6 HRS
     Route: 048
     Dates: start: 20100204
  21. OMEPRAZOLE [Concomitant]
     Dosage: 20 MG, 2/D
     Route: 048
     Dates: end: 20100201
  22. OMEPRAZOLE [Concomitant]
     Dosage: 20 MG, EACH MORNING
     Route: 048
     Dates: start: 20100201
  23. PHENERGAN [Concomitant]
     Indication: NAUSEA
     Dosage: 12.5 MG, EVERY 6 HRS PRN
     Route: 048
     Dates: start: 20100105
  24. PHENERGAN [Concomitant]
     Dosage: 25 MG, EVERY 8 HRS PRN
     Route: 048
     Dates: start: 20100105
  25. DOCUSATE SODIUM [Concomitant]
     Dosage: 200 MG, 2/D
     Route: 048
     Dates: start: 20100204
  26. DURAGESIC-100 [Concomitant]
     Dosage: 100 UG, EVERY 72 HOURS
     Route: 062
     Dates: start: 20100204, end: 20100205
  27. DURAGESIC-100 [Concomitant]
     Dosage: 50 UG, EVERY 72 HRS
     Route: 062
     Dates: start: 20100206, end: 20100208
  28. HEPARIN SODIUM [Concomitant]
     Indication: THROMBOSIS PROPHYLAXIS
     Dosage: 5000 U, EVERY 8 HRS
     Route: 058
     Dates: start: 20100204, end: 20100207
  29. DILAUDID [Concomitant]
     Indication: ABDOMINAL PAIN
     Dates: start: 20100101
  30. DILAUDID [Concomitant]
     Dosage: 1 MG, UNKNOWN
     Route: 042
     Dates: start: 20100204, end: 20100206
  31. TORADOL [Concomitant]
     Indication: ABDOMINAL PAIN
     Dates: start: 20100101
  32. METHADONE HYDROCHLORIDE [Concomitant]
     Dosage: 40 MG, DAILY (1/D)
     Route: 048
  33. ZOFRAN [Concomitant]
     Dosage: 4 MG, UNK
     Route: 042
     Dates: start: 20100204
  34. MARINOL [Concomitant]
     Dosage: 2.5 MG, UNKNOWN
     Route: 048
     Dates: start: 20100204
  35. MARINOL [Concomitant]
     Dosage: 5 MG, UNKNOWN
     Route: 048
     Dates: start: 20100208
  36. MIRALAX [Concomitant]
     Dosage: UNK, EACH EVENING
     Route: 048
     Dates: start: 20100204
  37. SENOKOT [Concomitant]
     Dates: start: 20100204
  38. SODIUM CHLORIDE [Concomitant]
     Indication: DEHYDRATION
     Dosage: 1000 ML, UNK
     Route: 042
     Dates: start: 20100204, end: 20100205
  39. SODIUM CHLORIDE [Concomitant]
     Dosage: 100 ML, EVERY HOUR
     Route: 042
     Dates: start: 20100205, end: 20100206
  40. SODIUM CHLORIDE [Concomitant]
     Dosage: 80 ML, EVERY HOUR
     Route: 042
     Dates: start: 20100206, end: 20100208
  41. MS CONTIN [Concomitant]
     Indication: PAIN
     Dosage: 90 MG, 2/D
     Route: 048
     Dates: start: 20100209, end: 20100214
  42. MS CONTIN [Concomitant]
     Dosage: 90 MG, EVERY 8 HRS
     Route: 048
     Dates: start: 20100215
  43. SCOPOLAMINE HYDROBROMIDE [Concomitant]
     Dosage: 1.5 MG, EVERY THREE DAYS
     Route: 062
     Dates: start: 20100215
  44. VALIUM [Concomitant]
     Dosage: 2.5 MG, 3/D
     Route: 048
     Dates: start: 20100215
  45. LACTULOSE [Concomitant]
     Dosage: 20 MG, 2/D
     Route: 048
     Dates: start: 20100204

REACTIONS (22)
  - ABDOMINAL PAIN [None]
  - ANAEMIA OF CHRONIC DISEASE [None]
  - ATELECTASIS [None]
  - CHEST PAIN [None]
  - DEHYDRATION [None]
  - DISSEMINATED INTRAVASCULAR COAGULATION [None]
  - GASTROOESOPHAGEAL REFLUX DISEASE [None]
  - GENERALISED OEDEMA [None]
  - HAEMORRHOIDS [None]
  - HEPATIC ENCEPHALOPATHY [None]
  - HEPATIC FAILURE [None]
  - HICCUPS [None]
  - HYPOALBUMINAEMIA [None]
  - LEUKOCYTOSIS [None]
  - MALIGNANT NEOPLASM PROGRESSION [None]
  - MALNUTRITION [None]
  - NAUSEA [None]
  - OROPHARYNGEAL PAIN [None]
  - RENAL FAILURE [None]
  - TACHYCARDIA [None]
  - THROMBOCYTOPENIA [None]
  - VOMITING [None]
